FAERS Safety Report 9478870 (Version 1)
Quarter: 2013Q3

REPORT INFORMATION
  Report Type: Spontaneous
  Country: GB (occurrence: GB)
  Receive Date: 20130827
  Receipt Date: 20130827
  Transmission Date: 20140515
  Serious: Yes (Hospitalization)
  Sender: FDA-Public Use
  Company Number: GB-TEVA-427866ISR

PATIENT
  Age: 89 Year
  Sex: Male

DRUGS (9)
  1. TRAMADOL [Suspect]
     Indication: ANALGESIC THERAPY
     Dosage: NOT KNOWN-ACUTE PRESCRIPTION BY PRIMARY CARE.
     Route: 048
     Dates: start: 20100215, end: 20100222
  2. AMITRIPTYLINE [Concomitant]
     Dosage: TAKE ONE TO TWO AT NIGHT.
  3. ASPIRIN [Concomitant]
  4. ATORVASTATIN [Concomitant]
  5. BISOPROLOL [Concomitant]
  6. DONEPEZIL [Concomitant]
  7. RAMIPRIL [Concomitant]
  8. TOLTERODINE [Concomitant]
  9. ZOPICLONE [Concomitant]

REACTIONS (4)
  - Confusional state [Recovered/Resolved]
  - Hallucination [Recovered/Resolved]
  - Fall [Recovering/Resolving]
  - Balance disorder [Unknown]
